FAERS Safety Report 8760663 (Version 3)
Quarter: 2013Q3

REPORT INFORMATION
  Report Type: Spontaneous
  Country: US (occurrence: US)
  Receive Date: 20120830
  Receipt Date: 20130802
  Transmission Date: 20140515
  Serious: Yes (Other)
  Sender: FDA-Public Use
  Company Number: US-UCBSA-064447

PATIENT
  Age: 35 Year
  Sex: Female
  Weight: 77.1 kg

DRUGS (10)
  1. VIMPAT [Suspect]
     Indication: CONVULSION
     Dosage: TIMES : 1AM / 1 PM
     Dates: start: 20120206
  2. VIMPAT [Suspect]
     Indication: CONVULSION
     Dosage: TIMES : 1AM / 1 PM
     Dates: start: 20120206
  3. ESTRACE [Concomitant]
     Dosage: TIME : 1 AM
  4. KLONAPIN [Concomitant]
     Dosage: DOSE : 0.5 MG
  5. GEODON [Concomitant]
     Dosage: DOSE : 60 MG , TIMES : 2 PM
  6. CARDIZEM [Concomitant]
     Dosage: TIMES : 1AM /1 PM
  7. DOMPERIDONE [Concomitant]
     Dosage: TIMES : 2 AM/ 1 PM
  8. B-12 [Concomitant]
     Dosage: TIMES : 2 AM
  9. D3 [Concomitant]
     Dosage: TIME: 1 AM
  10. MULTIVITAMIN [Concomitant]

REACTIONS (1)
  - Convulsion [Not Recovered/Not Resolved]
